FAERS Safety Report 9239504 (Version 2)
Quarter: 2013Q2

REPORT INFORMATION
  Report Type: Spontaneous
  Country: US (occurrence: US)
  Receive Date: 20130418
  Receipt Date: 20130511
  Transmission Date: 20140414
  Serious: No
  Sender: FDA-Public Use
  Company Number: US-TEVA-399075USA

PATIENT
  Age: 55 Year
  Sex: Male
  Weight: 92.16 kg

DRUGS (8)
  1. AZILECT [Suspect]
     Indication: PARKINSON^S DISEASE
     Dosage: 1 MILLIGRAM DAILY;
     Route: 048
     Dates: start: 20130215, end: 20130228
  2. AZILECT [Suspect]
     Dosage: .5 MILLIGRAM DAILY;
     Route: 048
     Dates: start: 20130301
  3. LISINOPRIL [Concomitant]
     Indication: HYPERTENSION
     Dosage: 10 MILLIGRAM DAILY;
     Route: 048
  4. ATENOLOL [Concomitant]
     Indication: HYPERTENSION
     Dosage: 12.5 MILLIGRAM DAILY;
     Route: 048
  5. ALLOPURINOL [Concomitant]
     Indication: GOUT
     Dosage: 300 MILLIGRAM DAILY;
     Route: 048
  6. ASPIRIN [Concomitant]
     Indication: PROPHYLAXIS
     Dosage: 325 MILLIGRAM DAILY;
     Route: 048
  7. SINEMET [Concomitant]
     Dosage: 25/100
     Dates: start: 20130315
  8. SINEMET [Concomitant]
     Dosage: 25 TO 100 MG
     Dates: start: 20130430

REACTIONS (5)
  - Aphasia [Not Recovered/Not Resolved]
  - Blood glucose abnormal [Recovered/Resolved]
  - Dizziness [Recovered/Resolved]
  - Constipation [Unknown]
  - Hallucination, auditory [Not Recovered/Not Resolved]
